FAERS Safety Report 5340190-X (Version None)
Quarter: 2007Q2

REPORT INFORMATION
  Report Type: 
  Country: None (occurrence: None)
  Receive Date: 20070531
  Receipt Date: 20070521
  Transmission Date: 20071010
  Serious: Yes (Hospitalization)
  Sender: FDA-Public Use
  Company Number: B0471822A

PATIENT
  Age: 52 Year
  Sex: Female

DRUGS (1)
  1. GW685698X [Suspect]
     Indication: ASTHMA
     Dosage: 200MCG PER DAY
     Route: 055
     Dates: start: 20070518, end: 20070521

REACTIONS (1)
  - ANGIOEDEMA [None]
